FAERS Safety Report 6851465-7 (Version None)
Quarter: 2010Q3

REPORT INFORMATION
  Report Type: 
  Country: None (occurrence: None)
  Receive Date: 20100717
  Receipt Date: 20080401
  Transmission Date: 20110219
  Serious: No
  Sender: FDA-Public Use
  Company Number: US-PFIZER INC-2008004898

PATIENT
  Sex: Female
  Weight: 87.3 kg

DRUGS (19)
  1. CHANTIX [Suspect]
     Indication: SMOKING CESSATION THERAPY
     Dates: start: 20071231
  2. INSULIN [Concomitant]
  3. ATENOLOL [Concomitant]
  4. HYDROCHLOROTHIAZIDE [Concomitant]
     Indication: CARDIAC FAILURE CONGESTIVE
  5. ALBUTEROL [Concomitant]
  6. ZOLOFT [Concomitant]
     Indication: MENTAL DISORDER
  7. ZOCOR [Concomitant]
  8. ENALAPRIL MALEATE [Concomitant]
     Indication: DIABETES MELLITUS
  9. FLEXERIL [Concomitant]
  10. TRAMADOL [Concomitant]
     Indication: PAIN
  11. POTASSIUM CHLORIDE [Concomitant]
  12. SPIRIVA [Concomitant]
  13. ADVAIR DISKUS 100/50 [Concomitant]
  14. ACETYLSALICYLIC ACID [Concomitant]
     Indication: CARDIAC FAILURE CONGESTIVE
  15. BENADRYL [Concomitant]
  16. TYLENOL [Concomitant]
  17. PRILOSEC [Concomitant]
     Indication: BARRETT'S OESOPHAGUS
  18. ONE-A-DAY [Concomitant]
  19. CALCIUM [Concomitant]

REACTIONS (1)
  - VOMITING [None]
